FAERS Safety Report 5372317-8 (Version None)
Quarter: 2007Q2

REPORT INFORMATION
  Report Type: 
  Country: None (occurrence: None)
  Receive Date: 20070627
  Receipt Date: 20070524
  Transmission Date: 20071010
  Serious: No
  Sender: FDA-Public Use
  Company Number: US-BRISTOL-MYERS SQUIBB COMPANY-13744958

PATIENT
  Age: 9 Year
  Sex: Male

DRUGS (7)
  1. BARACLUDE [Suspect]
     Indication: HEPATITIS B
     Route: 048
     Dates: start: 20061023
  2. ADDERALL XR 10 [Concomitant]
     Route: 048
  3. FOCALIN [Concomitant]
     Route: 048
  4. CLONIDINE [Concomitant]
     Route: 048
  5. ABILIFY [Concomitant]
     Route: 048
  6. DETROL LA [Concomitant]
     Route: 048
  7. PSEUDOEPHEDRINE HCL [Concomitant]
     Indication: COUGH
     Route: 048

REACTIONS (1)
  - VIRAL LOAD INCREASED [None]
